FAERS Safety Report 19751370 (Version 1)
Quarter: 2021Q3

REPORT INFORMATION
  Report Type: Spontaneous
  Country: CA (occurrence: CA)
  Receive Date: 20210827
  Receipt Date: 20210827
  Transmission Date: 20211014
  Serious: Yes (Death, Other)
  Sender: FDA-Public Use
  Company Number: CA-AUROBINDO-AUR-APL-2021-036027

PATIENT
  Age: 73 Year
  Sex: Female

DRUGS (3)
  1. COVERSYL [Concomitant]
     Active Substance: PERINDOPRIL
     Indication: PRODUCT USED FOR UNKNOWN INDICATION
     Dosage: UNK
     Route: 048
  2. AMLODIPINE [Suspect]
     Active Substance: AMLODIPINE BESYLATE
     Indication: PRODUCT USED FOR UNKNOWN INDICATION
     Dosage: UNK
     Route: 048
  3. SANDOSTATIN [Suspect]
     Active Substance: OCTREOTIDE ACETATE
     Indication: CARCINOID TUMOUR
     Dosage: 30 MILLIGRAM 1 EVERY 4 WEEKS
     Route: 030

REACTIONS (16)
  - Blood pressure diastolic decreased [Fatal]
  - Blood pressure systolic increased [Fatal]
  - Oedema peripheral [Fatal]
  - Fatigue [Fatal]
  - Pleural effusion [Fatal]
  - Weight decreased [Fatal]
  - Blood pressure decreased [Fatal]
  - Breath sounds abnormal [Fatal]
  - Dizziness [Fatal]
  - Secretion discharge [Fatal]
  - Chronic obstructive pulmonary disease [Fatal]
  - Cough [Fatal]
  - Heart rate increased [Fatal]
  - Polyp [Fatal]
  - Death [Fatal]
  - Dyspnoea [Fatal]
